FAERS Safety Report 25760783 (Version 2)
Quarter: 2025Q4

REPORT INFORMATION
  Report Type: Spontaneous
  Country: CA (occurrence: CA)
  Receive Date: 20250904
  Receipt Date: 20251231
  Transmission Date: 20260118
  Serious: Yes (Other)
  Sender: PFIZER
  Company Number: CA-PFIZER INC-202500173821

PATIENT
  Age: 54 Year
  Sex: Female

DRUGS (2)
  1. XELJANZ XR [Suspect]
     Active Substance: TOFACITINIB CITRATE
     Indication: Rheumatoid arthritis
     Dosage: 11 MG, 1X/DAY
     Route: 048
  2. KINERET [Concomitant]
     Active Substance: ANAKINRA
     Dosage: 100 MG PER SYRINGE, SOLUTION SUBCUTANEOUS, SINGLE USE PRESERVATIVE FREE PREFILLED SYRINGES
     Route: 058

REACTIONS (11)
  - Eating disorder [Not Recovered/Not Resolved]
  - Gastric ulcer [Not Recovered/Not Resolved]
  - Vulvovaginal mycotic infection [Not Recovered/Not Resolved]
  - Antiphospholipid syndrome [Unknown]
  - Abdominal pain [Unknown]
  - Arthralgia [Unknown]
  - Constipation [Unknown]
  - Drug ineffective [Unknown]
  - Joint swelling [Unknown]
  - Stomatitis [Unknown]
  - Surgery [Unknown]
